FAERS Safety Report 6296835-3 (Version None)
Quarter: 2009Q3

REPORT INFORMATION
  Report Type: 
  Country: None (occurrence: None)
  Receive Date: 20090804
  Receipt Date: 20090729
  Transmission Date: 20100115
  Serious: Yes (Other)
  Sender: FDA-Public Use
  Company Number: PHHY2009CA17706

PATIENT
  Sex: Female

DRUGS (3)
  1. SANDOSTATIN LAR [Suspect]
     Indication: NEUROENDOCRINE CARCINOMA
     Dosage: 30 MG EVERY 4 WEEKS
     Route: 030
     Dates: start: 20060601
  2. SANDOSTATIN LAR [Suspect]
     Indication: METASTASES TO LIVER
     Dosage: 30 MG
     Route: 030
     Dates: start: 20090414, end: 20090414
  3. SANDOSTATIN LAR [Suspect]
     Dosage: 30 MG
     Route: 030
     Dates: start: 20090416, end: 20090416

REACTIONS (2)
  - INAPPROPRIATE SCHEDULE OF DRUG ADMINISTRATION [None]
  - INJECTION SITE HAEMORRHAGE [None]
